FAERS Safety Report 19013778 (Version 1)
Quarter: 2021Q1

REPORT INFORMATION
  Report Type: Spontaneous
  Country: CN (occurrence: CN)
  Receive Date: 20210315
  Receipt Date: 20210315
  Transmission Date: 20210420
  Serious: Yes (Other)
  Sender: FDA-Public Use
  Company Number: CN-BAXTER-2021BAX004767

PATIENT
  Age: 69 Year
  Sex: Female
  Weight: 63 kg

DRUGS (13)
  1. 0.9% SODIUM CHLORIDE INJECTION [Suspect]
     Active Substance: SODIUM CHLORIDE
     Dosage: DOSE RE?INTRODUCED, NS + PHARMORUBICIN
     Route: 041
  2. ENDOXAN [Suspect]
     Active Substance: CYCLOPHOSPHAMIDE
     Dosage: THIRD CHEMOTHERAPY, ENDOXAN + NS 40 ML
     Route: 042
     Dates: start: 20210204, end: 20210204
  3. 0.9% SODIUM CHLORIDE INJECTION [Suspect]
     Active Substance: SODIUM CHLORIDE
     Dosage: FIRST AND SECOND CHEMOTHERAPY, NS + PHARMORUBICIN
     Route: 041
  4. PHARMORUBICIN [Suspect]
     Active Substance: EPIRUBICIN
     Indication: BREAST CANCER FEMALE
     Dosage: FIRST AND SECOND CHEMOTHERAPY, PHARMORUBICIN + NS
     Route: 041
  5. PHARMORUBICIN [Suspect]
     Active Substance: EPIRUBICIN
     Dosage: THIRD CHEMOTHERAPY, PHARMORUBICIN + NS 100 ML
     Route: 041
     Dates: start: 20210204, end: 20210204
  6. JINYOULI [Concomitant]
     Active Substance: ANF-RHO
     Indication: PROPHYLAXIS
     Route: 058
     Dates: start: 20210205
  7. ENDOXAN [Suspect]
     Active Substance: CYCLOPHOSPHAMIDE
     Indication: BREAST CANCER FEMALE
     Dosage: FIRST AND SECOND CHEMOTHERAPY, ENDOXAN + NORMAL SALINE (NS)
     Route: 042
  8. 0.9% SODIUM CHLORIDE INJECTION [Suspect]
     Active Substance: SODIUM CHLORIDE
     Dosage: DOSE RE?INTRODUCED, NS + ENDOXAN
     Route: 042
  9. PHARMORUBICIN [Suspect]
     Active Substance: EPIRUBICIN
     Dosage: DOSE RE?INTRODUCED, PHARMORUBICIN + NS
     Route: 041
  10. ENDOXAN [Suspect]
     Active Substance: CYCLOPHOSPHAMIDE
     Dosage: DOSE RE?INTRODUCED, ENDOXAN + NS
     Route: 042
  11. 0.9% SODIUM CHLORIDE INJECTION [Suspect]
     Active Substance: SODIUM CHLORIDE
     Indication: MEDICATION DILUTION
     Dosage: FIRST AND SECOND CHEMOTHERAPY, NS + ENDOXAN
     Route: 042
  12. 0.9% SODIUM CHLORIDE INJECTION [Suspect]
     Active Substance: SODIUM CHLORIDE
     Dosage: THIRD CHEMOTHERAPY, NS + ENDOXAN 800 MG
     Route: 042
     Dates: start: 20210204, end: 20210204
  13. 0.9% SODIUM CHLORIDE INJECTION [Suspect]
     Active Substance: SODIUM CHLORIDE
     Dosage: THIRD CHEMOTHERAPY, NS + PHARMORUBICIN 120 MG
     Route: 041
     Dates: start: 20210204, end: 20210204

REACTIONS (2)
  - White blood cell count decreased [Recovering/Resolving]
  - Agranulocytosis [Recovering/Resolving]

NARRATIVE: CASE EVENT DATE: 20210211
